FAERS Safety Report 5263543-7 (Version None)
Quarter: 2007Q1

REPORT INFORMATION
  Report Type: 
  Country: None (occurrence: None)
  Receive Date: 20070313
  Receipt Date: 20070228
  Transmission Date: 20070707
  Serious: Yes (Other)
  Sender: FDA-Public Use
  Company Number: PHNU2006DE03783

PATIENT
  Age: 67 Year
  Sex: Male
  Weight: 109 kg

DRUGS (4)
  1. ZOMETA [Suspect]
     Indication: METASTASES TO BONE
     Dosage: 4 MG, EVERY 4 WEEKS
     Route: 042
     Dates: start: 20030129, end: 20060911
  2. TAXOTERE [Suspect]
     Indication: PROSTATE CANCER METASTATIC
     Dosage: 77 MG, QD
     Route: 042
     Dates: start: 20040809
  3. TRENANTONE [Concomitant]
     Indication: PROSTATE CANCER METASTATIC
     Dosage: 11.25 MG, QD
     Route: 058
     Dates: start: 20020517
  4. DEXAMETHASONE [Concomitant]
     Indication: PROSTATE CANCER METASTATIC
     Dosage: 8 MG, QD
     Route: 065
     Dates: start: 20040809

REACTIONS (3)
  - OSTEONECROSIS [None]
  - PERIODONTITIS [None]
  - TOOTH EXTRACTION [None]
